FAERS Safety Report 4512245-0 (Version None)
Quarter: 2004Q4

REPORT INFORMATION
  Report Type: 
  Country: None (occurrence: None)
  Receive Date: 20041123
  Receipt Date: 20041110
  Transmission Date: 20050328
  Serious: Yes (Other)
  Sender: FDA-Public Use
  Company Number: 2004093720

PATIENT
  Sex: Male

DRUGS (2)
  1. CELEBREX [Suspect]
     Indication: BACK PAIN
     Dosage: 200 MG, ORAL
     Route: 048
  2. CELEBREX [Suspect]
     Indication: NECK PAIN
     Dosage: 200 MG, ORAL
     Route: 048

REACTIONS (5)
  - DIZZINESS [None]
  - HEART RATE DECREASED [None]
  - LOSS OF CONSCIOUSNESS [None]
  - VISION BLURRED [None]
  - VOMITING [None]
